FAERS Safety Report 8803347 (Version 1)
Quarter: 2012Q4

REPORT INFORMATION
  Report Type: 
  Country: TR (occurrence: TR)
  Receive Date: 20120924
  Receipt Date: 20120924
  Transmission Date: 20130627
  Serious: Yes (Death, Other)
  Sender: FDA-Public Use
  Company Number: PHHY2012TR081255

PATIENT
  Age: 60 Year
  Sex: Male

DRUGS (5)
  1. ZOLEDRONIC ACID [Suspect]
     Indication: METASTASES TO BONE
     Dosage: 4 mg, once every 3 weeks
  2. GOSERELIN ACETATE [Suspect]
     Dosage: 10.8 mg, once every 3 months
  3. CYPROTERONE ACETATE [Suspect]
     Dosage: 100 mg, daily
  4. SODIUM BICARBONATE [Concomitant]
  5. RADIOTHERAPY [Concomitant]

REACTIONS (14)
  - Tumour lysis syndrome [Fatal]
  - Cardio-respiratory arrest [Fatal]
  - Neoplasm progression [Unknown]
  - Malignant neoplasm progression [Unknown]
  - Prostatic specific antigen increased [Unknown]
  - Thrombocytopenia [Unknown]
  - Leukoerythroblastosis [Unknown]
  - Anaemia [Unknown]
  - Hypotension [Unknown]
  - Urine output decreased [Unknown]
  - Back pain [Unknown]
  - Dyspnoea [Unknown]
  - Bone pain [Unknown]
  - Prostate cancer [None]
